FAERS Safety Report 6243477-1 (Version None)
Quarter: 2009Q2

REPORT INFORMATION
  Report Type: 
  Country: None (occurrence: None)
  Receive Date: 20090624
  Receipt Date: 20090618
  Transmission Date: 20091009
  Serious: Yes (Other)
  Sender: FDA-Public Use
  Company Number: GB-ABBOTT-09P-167-0580610-00

PATIENT
  Age: 49 Year
  Sex: Female
  Weight: 65 kg

DRUGS (9)
  1. EPILIM CHRONO [Suspect]
     Indication: MANIA
     Route: 048
     Dates: start: 20060411, end: 20081201
  2. EPILIM CHRONO [Suspect]
     Indication: PSYCHOTIC DISORDER
  3. SEROQUEL [Suspect]
     Indication: MANIA
     Route: 048
     Dates: start: 20080101, end: 20080101
  4. SEROQUEL [Suspect]
     Indication: PSYCHOTIC DISORDER
     Route: 048
     Dates: start: 20080101, end: 20090401
  5. ANTIBIOTICS [Concomitant]
     Indication: LOWER RESPIRATORY TRACT INFECTION
     Dates: start: 20080101
  6. ANTIBIOTICS [Concomitant]
     Indication: LUNG ABSCESS
  7. CLONAZEPAM [Concomitant]
     Indication: MANIA
     Route: 048
     Dates: start: 20050101
  8. LITHIUM CARBONATE [Concomitant]
     Indication: DRUG USE FOR UNKNOWN INDICATION
     Dates: end: 20070101
  9. LEVOTHYROXINE SODIUM [Concomitant]
     Indication: HYPOTHYROIDISM
     Route: 048
     Dates: start: 20061101

REACTIONS (2)
  - NEUTROPENIA [None]
  - THYROID DISORDER [None]
